FAERS Safety Report 10338585 (Version 1)
Quarter: 2014Q3

REPORT INFORMATION
  Report Type: Spontaneous
  Country: US (occurrence: US)
  Receive Date: 20140724
  Receipt Date: 20140724
  Transmission Date: 20150326
  Serious: No
  Sender: FDA-Public Use
  Company Number: US-UNITED THERAPEUTICS-UTC-046275

PATIENT
  Sex: Female
  Weight: 108.86 kg

DRUGS (1)
  1. REMODULIN [Suspect]
     Active Substance: TREPROSTINIL
     Dosage: 0.080 UG/KG/MIN
     Route: 058
     Dates: start: 20130601

REACTIONS (2)
  - Bowel movement irregularity [Unknown]
  - Abdominal distension [Unknown]
